FAERS Safety Report 5386975-5 (Version None)
Quarter: 2007Q3

REPORT INFORMATION
  Report Type: 
  Country: None (occurrence: None)
  Receive Date: 20070713
  Receipt Date: 20070701
  Transmission Date: 20080115
  Serious: Yes (Hospitalization, Other)
  Sender: FDA-Public Use
  Company Number: US-PFIZER INC-2007055274

PATIENT
  Sex: Female

DRUGS (8)
  1. PREDNISONE [Suspect]
  2. ANTIHYPERTENSIVES [Concomitant]
  3. SPIRIVA [Concomitant]
  4. ADVAIR DISKUS 100/50 [Concomitant]
  5. METOPROLOL SUCCINATE [Concomitant]
  6. POTASSIUM CHLORIDE [Concomitant]
  7. OXYGEN [Concomitant]
  8. TRIAMTERENE AND HYDROCHLOROTHIAZIDE [Concomitant]
     Dosage: TEXT:HALF TABLET

REACTIONS (3)
  - BLOOD GLUCOSE INCREASED [None]
  - CHRONIC OBSTRUCTIVE PULMONARY DISEASE [None]
  - COMA [None]
